FAERS Safety Report 25299246 (Version 1)
Quarter: 2025Q2

REPORT INFORMATION
  Report Type: Spontaneous
  Country: US (occurrence: US)
  Receive Date: 20250512
  Receipt Date: 20250512
  Transmission Date: 20250716
  Serious: Yes (Other)
  Sender: BRISTOL-MYERS SQUIBB COMPANY
  Company Number: US-BRISTOL-MYERS SQUIBB COMPANY-2025-064260

PATIENT
  Age: 77 Year
  Sex: Male
  Weight: 92 kg

DRUGS (15)
  1. REVLIMID [Suspect]
     Active Substance: LENALIDOMIDE
     Indication: Plasma cell myeloma
     Route: 048
     Dates: start: 20230901
  2. ACYCLOVIR [Concomitant]
     Active Substance: ACYCLOVIR
  3. OXYCODONE AND ACETAMINOPHEN [Concomitant]
     Active Substance: ACETAMINOPHEN\OXYCODONE HYDROCHLORIDE
  4. PROCHLORPERAZINE [Concomitant]
     Active Substance: PROCHLORPERAZINE
  5. FENTANYL [Concomitant]
     Active Substance: FENTANYL
  6. FEXOFENADINE [Concomitant]
     Active Substance: FEXOFENADINE HYDROCHLORIDE
  7. VITAMIN B COMPLEX [Concomitant]
     Active Substance: CYANOCOBALAMIN\DEXPANTHENOL\NIACINAMIDE\PYRIDOXINE HYDROCHLORIDE\RIBOFLAVIN 5^-PHOSPHATE SODIUM\THIA
  8. CALCITRIOL [Concomitant]
     Active Substance: CALCITRIOL
  9. ONDANSETRON [Concomitant]
     Active Substance: ONDANSETRON
  10. CITALOPRAM [Concomitant]
     Active Substance: CITALOPRAM
  11. WARFARIN [Concomitant]
     Active Substance: WARFARIN
  12. ACETAMINOPHEN [Concomitant]
     Active Substance: ACETAMINOPHEN
  13. CALCIUM\ERGOCALCIFEROL [Concomitant]
     Active Substance: CALCIUM\ERGOCALCIFEROL
  14. MINERALS\VITAMINS [Concomitant]
     Active Substance: MINERALS\VITAMINS
  15. SENNA LAXATIVE [Concomitant]
     Active Substance: SENNOSIDES

REACTIONS (1)
  - Osteomyelitis [Unknown]
